FAERS Safety Report 8448251-3 (Version None)
Quarter: 2012Q2

REPORT INFORMATION
  Report Type: 
  Country: None (occurrence: None)
  Receive Date: 20120619
  Receipt Date: 20120515
  Transmission Date: 20120825
  Serious: No
  Sender: FDA-Public Use
  Company Number: US-FOUGERA-2012FO001073

PATIENT
  Age: 63 Year
  Sex: Female
  Weight: 58.97 kg

DRUGS (7)
  1. IMIQUIMOD [Suspect]
     Indication: BASAL CELL CARCINOMA
     Route: 061
     Dates: start: 20120314, end: 20120401
  2. IMIQUIMOD [Suspect]
     Indication: HYPERKERATOSIS
     Route: 061
     Dates: start: 20120314, end: 20120401
  3. IMIQUIMOD [Suspect]
     Indication: PRECANCEROUS SKIN LESION
     Route: 061
     Dates: start: 20120314, end: 20120401
  4. IMIQUIMOD [Suspect]
     Route: 061
     Dates: start: 20120314, end: 20120401
  5. IMIQUIMOD [Suspect]
     Route: 061
     Dates: start: 20120314, end: 20120401
  6. IMIQUIMOD [Suspect]
     Route: 061
     Dates: start: 20120314, end: 20120401
  7. VITAMIN TAB [Concomitant]
     Indication: PRODUCT USED FOR UNKNOWN INDICATION

REACTIONS (8)
  - OFF LABEL USE [None]
  - APPLICATION SITE SWELLING [None]
  - CELLULITIS [None]
  - PYREXIA [None]
  - PAIN IN EXTREMITY [None]
  - GAIT DISTURBANCE [None]
  - APPLICATION SITE ERYTHEMA [None]
  - APPLICATION SITE INFLAMMATION [None]
